FAERS Safety Report 17069121 (Version 1)
Quarter: 2019Q4

REPORT INFORMATION
  Report Type: Spontaneous
  Country: FR (occurrence: FR)
  Receive Date: 20191124
  Receipt Date: 20191124
  Transmission Date: 20200122
  Serious: Yes (Hospitalization, Other)
  Sender: FDA-Public Use
  Company Number: FR-BRISTOL-MYERS SQUIBB COMPANY-BMS-2019-110162

PATIENT
  Age: 90 Year
  Sex: Male
  Weight: 74.4 kg

DRUGS (1)
  1. OPDIVO [Suspect]
     Active Substance: NIVOLUMAB
     Indication: METASTATIC MALIGNANT MELANOMA
     Dosage: UNK
     Route: 041
     Dates: start: 20190731, end: 20190731

REACTIONS (3)
  - Myalgia [Not Recovered/Not Resolved]
  - Pyramidal tract syndrome [Not Recovered/Not Resolved]
  - Muscular weakness [Not Recovered/Not Resolved]

NARRATIVE: CASE EVENT DATE: 201908
